FAERS Safety Report 10575721 (Version 1)
Quarter: 2014Q4

REPORT INFORMATION
  Report Type: Spontaneous
  Country: US (occurrence: US)
  Receive Date: 20141111
  Receipt Date: 20141111
  Transmission Date: 20150529
  Serious: No
  Sender: FDA-Public Use
  Company Number: US-PFIZER INC-2014304504

PATIENT
  Age: 78 Year
  Sex: Male

DRUGS (2)
  1. SUTENT [Suspect]
     Active Substance: SUNITINIB MALATE
     Indication: GASTROINTESTINAL HAEMORRHAGE
  2. SUTENT [Suspect]
     Active Substance: SUNITINIB MALATE
     Indication: HAEMORRHAGIC ANAEMIA
     Dosage: 25 MG, DAILY
     Route: 048

REACTIONS (1)
  - Eye oedema [Unknown]

NARRATIVE: CASE EVENT DATE: 20141103
